FAERS Safety Report 5745861-9 (Version None)
Quarter: 2008Q2

REPORT INFORMATION
  Report Type: 
  Country: None (occurrence: None)
  Receive Date: 20080521
  Receipt Date: 20080513
  Transmission Date: 20081010
  Serious: Yes (Hospitalization)
  Sender: FDA-Public Use
  Company Number: GB-AMGEN-UK276036

PATIENT
  Sex: Female
  Weight: 55.8 kg

DRUGS (2)
  1. PANITUMUMAB [Suspect]
     Indication: COLORECTAL CANCER
     Route: 042
     Dates: start: 20080214, end: 20080415
  2. IRINOTECAN HCL [Suspect]
     Route: 042
     Dates: start: 20080214, end: 20080415

REACTIONS (1)
  - FEBRILE NEUTROPENIA [None]
